FAERS Safety Report 13674779 (Version 1)
Quarter: 2017Q2

REPORT INFORMATION
  Report Type: Spontaneous
  Country: FR (occurrence: FR)
  Receive Date: 20170621
  Receipt Date: 20170621
  Transmission Date: 20170830
  Serious: Yes (Other)
  Sender: FDA-Public Use
  Company Number: FR-PFIZER INC-2017263945

PATIENT
  Age: 57 Year
  Sex: Male

DRUGS (9)
  1. LYRICA [Suspect]
     Active Substance: PREGABALIN
     Indication: EPILEPSY
     Dosage: 75 MG, 2X/DAY MORNING AND EVENING
     Route: 048
     Dates: start: 2015
  2. LYRICA [Suspect]
     Active Substance: PREGABALIN
     Dosage: 75 MG, 1X/DAY
     Route: 048
     Dates: start: 20170418
  3. PAROXETINE. [Concomitant]
     Active Substance: PAROXETINE
     Dosage: 10 MG, DAILY
     Route: 048
  4. BISOPROLOL FUMARATE. [Concomitant]
     Active Substance: BISOPROLOL FUMARATE
     Indication: HYPERTENSION
     Dosage: 5 MG, DAILY
     Route: 048
  5. OMEPRAZOLE. [Concomitant]
     Active Substance: OMEPRAZOLE
     Indication: PROPHYLAXIS AGAINST GASTROINTESTINAL ULCER
     Dosage: 20 MG, DAILY, EVENING
     Route: 048
  6. LYRICA [Suspect]
     Active Substance: PREGABALIN
     Dosage: 100 MG, 2X/DAY
     Route: 048
     Dates: start: 201703, end: 20170418
  7. LYRICA [Suspect]
     Active Substance: PREGABALIN
     Dosage: 75 MG, 1X/DAY
     Route: 048
     Dates: end: 201703
  8. KARDEGIC [Concomitant]
     Active Substance: ASPIRIN LYSINE
     Indication: PROPHYLAXIS
     Dosage: 75 MG, 1X/DAY, AT NOON
     Route: 048
  9. EUPRESSYL [Concomitant]
     Active Substance: URAPIDIL
     Dosage: 30 MG, 2X/DAY, MORNING AND EVENING

REACTIONS (9)
  - Vertigo [Recovered/Resolved]
  - Drug effect incomplete [Unknown]
  - Fall [Recovered/Resolved]
  - Malaise [Recovered/Resolved]
  - Humerus fracture [Unknown]
  - Orthostatic hypotension [Unknown]
  - Loss of consciousness [Recovered/Resolved]
  - Balance disorder [Unknown]
  - Bradycardia [Unknown]

NARRATIVE: CASE EVENT DATE: 201703
